FAERS Safety Report 18869891 (Version 2)
Quarter: 2021Q2

REPORT INFORMATION
  Report Type: Spontaneous
  Country: US (occurrence: US)
  Receive Date: 20210209
  Receipt Date: 20210617
  Transmission Date: 20210717
  Serious: Yes (Other)
  Sender: FDA-Public Use
  Company Number: US-GILEAD-2021-0515572

PATIENT
  Sex: Female
  Weight: 73.92 kg

DRUGS (49)
  1. ASPIRIN 81 [Concomitant]
     Active Substance: ASPIRIN
  2. CRESTOR [Concomitant]
     Active Substance: ROSUVASTATIN CALCIUM
  3. DICLOFENAC SODIUM. [Concomitant]
     Active Substance: DICLOFENAC SODIUM
  4. LAMOTRIGINE. [Concomitant]
     Active Substance: LAMOTRIGINE
  5. METHYLPREDNISOLONE. [Concomitant]
     Active Substance: METHYLPREDNISOLONE
  6. SILVER SULFADIAZINE. [Concomitant]
     Active Substance: SILVER SULFADIAZINE
  7. TRUVADA [Suspect]
     Active Substance: EMTRICITABINE\TENOFOVIR DISOPROXIL FUMARATE
     Dosage: UNK
     Route: 065
     Dates: start: 2011
  8. OMEPRAZOLE. [Concomitant]
     Active Substance: OMEPRAZOLE
  9. ZOFRAN [Concomitant]
     Active Substance: ONDANSETRON HYDROCHLORIDE
  10. TAMIFLU [Concomitant]
     Active Substance: OSELTAMIVIR PHOSPHATE
  11. CENTRUM SILVER FORTE [Concomitant]
     Active Substance: VITAMINS
  12. FLUOXETINE HYDROCHLORIDE. [Concomitant]
     Active Substance: FLUOXETINE HYDROCHLORIDE
  13. OSELTAMIVIR PHOSPHATE. [Concomitant]
     Active Substance: OSELTAMIVIR PHOSPHATE
  14. BESIVANCE [Concomitant]
     Active Substance: BESIFLOXACIN
  15. CRIXIVAN [Concomitant]
     Active Substance: INDINAVIR SULFATE
  16. TRIUMEQ [Concomitant]
     Active Substance: ABACAVIR SULFATE\DOLUTEGRAVIR SODIUM\LAMIVUDINE
  17. LEVOTHYROXINE SODIUM. [Concomitant]
     Active Substance: LEVOTHYROXINE SODIUM
  18. MOMETASONE FUROATE. [Concomitant]
     Active Substance: MOMETASONE FUROATE
  19. NASONEX [Concomitant]
     Active Substance: MOMETASONE FUROATE
  20. TECFIDERA [Concomitant]
     Active Substance: DIMETHYL FUMARATE
  21. TRUVADA [Suspect]
     Active Substance: EMTRICITABINE\TENOFOVIR DISOPROXIL FUMARATE
     Indication: HIV INFECTION
     Dosage: UNK
     Route: 065
     Dates: start: 2008, end: 2011
  22. SUSTIVA [Concomitant]
     Active Substance: EFAVIRENZ
  23. VIDEX [Concomitant]
     Active Substance: DIDANOSINE
  24. AMITRIPTYLINE [Concomitant]
     Active Substance: AMITRIPTYLINE
  25. ABACAVIR;LAMIVUDINE [Concomitant]
     Active Substance: ABACAVIR\LAMIVUDINE
  26. FYCOMPA [Concomitant]
     Active Substance: PERAMPANEL
  27. SYNTHROID [Concomitant]
     Active Substance: LEVOTHYROXINE SODIUM
  28. MELOXICAM. [Concomitant]
     Active Substance: MELOXICAM
  29. OXYCODONE WITH APAP [Concomitant]
     Active Substance: ACETAMINOPHEN\OXYCODONE HYDROCHLORIDE
  30. PROMETHAZINE HYDROCHLORIDE. [Concomitant]
     Active Substance: PROMETHAZINE HYDROCHLORIDE
  31. TRAMADOL. [Concomitant]
     Active Substance: TRAMADOL
  32. EPIVIR [Concomitant]
     Active Substance: LAMIVUDINE
  33. DICLOFENAC POTASSIUM. [Concomitant]
     Active Substance: DICLOFENAC POTASSIUM
  34. KEPPRA [Concomitant]
     Active Substance: LEVETIRACETAM
  35. TRILEPTAL [Concomitant]
     Active Substance: OXCARBAZEPINE
  36. KALETRA [Concomitant]
     Active Substance: LOPINAVIR\RITONAVIR
  37. ZERIT [Concomitant]
     Active Substance: STAVUDINE
  38. OXYCODONE HYDROCHLORIDE. [Concomitant]
     Active Substance: OXYCODONE HYDROCHLORIDE
  39. DIAZEPAM. [Concomitant]
     Active Substance: DIAZEPAM
  40. EPINASTINE HYDROCHLORIDE. [Concomitant]
     Active Substance: EPINASTINE HYDROCHLORIDE
  41. COMPLERA [Suspect]
     Active Substance: EMTRICITABINE\RILPIVIRINE HYDROCHLORIDE\TENOFOVIR DISOPROXIL FUMARATE
     Indication: PRODUCT USED FOR UNKNOWN INDICATION
     Dosage: UNK
     Route: 048
     Dates: start: 2011
  42. METOPROLOL. [Concomitant]
     Active Substance: METOPROLOL
  43. VIMPAT [Concomitant]
     Active Substance: LACOSAMIDE
  44. SIMVASTATIN. [Concomitant]
     Active Substance: SIMVASTATIN
  45. LIDOCAINE HYDROCHLORIDE. [Concomitant]
     Active Substance: LIDOCAINE HYDROCHLORIDE
  46. PANTOPRAZOLE SODIUM. [Concomitant]
     Active Substance: PANTOPRAZOLE SODIUM
  47. PREDNISOLONE ACETATE. [Concomitant]
     Active Substance: PREDNISOLONE ACETATE
  48. TOPIRAMATE. [Concomitant]
     Active Substance: TOPIRAMATE
  49. ZONISAMIDE. [Concomitant]
     Active Substance: ZONISAMIDE

REACTIONS (5)
  - Anhedonia [Unknown]
  - Pain [Unknown]
  - Anxiety [Unknown]
  - Chronic kidney disease [Not Recovered/Not Resolved]
  - Emotional distress [Unknown]

NARRATIVE: CASE EVENT DATE: 2015
